FAERS Safety Report 8129625-7 (Version None)
Quarter: 2012Q1

REPORT INFORMATION
  Report Type: 
  Country: None (occurrence: None)
  Receive Date: 20120210
  Receipt Date: 20120207
  Transmission Date: 20120608
  Serious: Yes (Hospitalization)
  Sender: FDA-Public Use
  Company Number: IT-GLAXOSMITHKLINE-B0780533A

PATIENT
  Sex: Female

DRUGS (5)
  1. SYMBICORT [Suspect]
     Indication: ASTHMA EXERCISE INDUCED
     Dosage: 2PUFF PER DAY
     Route: 055
     Dates: start: 20101222
  2. FLUTICASONE FUROATE [Concomitant]
     Dosage: 1PUFF PER DAY
     Route: 055
  3. FLUVOXAMINE MALEATE [Suspect]
     Indication: DEPRESSION
     Dosage: 50MG PER DAY
     Route: 048
     Dates: start: 19970411
  4. LORAZEPAM [Concomitant]
     Dosage: 2.5MG PER DAY
     Route: 048
  5. VENTOLIN [Suspect]
     Indication: ASTHMA EXERCISE INDUCED
     Dosage: 2PUFF PER DAY
     Route: 055
     Dates: start: 20101222

REACTIONS (3)
  - SYNCOPE [None]
  - HEAD INJURY [None]
  - SUBARACHNOID HAEMORRHAGE [None]
